FAERS Safety Report 5373233-8 (Version None)
Quarter: 2007Q2

REPORT INFORMATION
  Report Type: 
  Country: None (occurrence: None)
  Receive Date: 20070628
  Receipt Date: 20070620
  Transmission Date: 20071010
  Serious: Yes (Hospitalization)
  Sender: FDA-Public Use
  Company Number: PHBS2007JP10649

PATIENT
  Age: 5 Year

DRUGS (1)
  1. TEGRETOL [Suspect]
     Dosage: 0.14 G, BID
     Route: 048

REACTIONS (4)
  - ACCIDENTAL OVERDOSE [None]
  - FALL [None]
  - MALAISE [None]
  - SOMNOLENCE [None]
